FAERS Safety Report 6084309-4 (Version None)
Quarter: 2009Q1

REPORT INFORMATION
  Report Type: 
  Country: None (occurrence: None)
  Receive Date: 20090217
  Receipt Date: 20090217
  Transmission Date: 20090719
  Serious: Yes (Hospitalization)
  Sender: FDA-Public Use
  Company Number: None

PATIENT
  Sex: Male
  Weight: 153 kg

DRUGS (11)
  1. GEMCITABINE [Suspect]
     Indication: PANCREATIC CARCINOMA
     Dosage: AS ABOVE
     Route: 042
  2. TARCEVA [Suspect]
     Indication: PANCREATIC CARCINOMA
     Dosage: AS ABOVE
  3. RADIATION 40CGY BID DAYS 1,2, 8, 9 [Suspect]
     Indication: PANCREATIC CARCINOMA
     Dosage: AS ABOVE
  4. ASPIRIN [Concomitant]
  5. METOPROLOL TARTRATE [Concomitant]
  6. FLOMAX [Concomitant]
  7. EYE DROPS [Concomitant]
  8. REMERON [Concomitant]
  9. REGLAN [Concomitant]
  10. COLACE [Concomitant]
  11. ZOFRAN [Concomitant]

REACTIONS (6)
  - BLOOD UREA INCREASED [None]
  - DEHYDRATION [None]
  - GASTROINTESTINAL HAEMORRHAGE [None]
  - PLATELET COUNT INCREASED [None]
  - SMALL INTESTINAL HAEMORRHAGE [None]
  - WHITE BLOOD CELL COUNT INCREASED [None]
